FAERS Safety Report 6810204-6 (Version None)
Quarter: 2010Q2

REPORT INFORMATION
  Report Type: 
  Country: None (occurrence: None)
  Receive Date: 20100630
  Receipt Date: 20100622
  Transmission Date: 20101027
  Serious: Yes (Other)
  Sender: FDA-Public Use
  Company Number: US-KINGPHARMUSA00001-K201000796

PATIENT
  Sex: Female

DRUGS (1)
  1. EPIPEN [Suspect]
     Indication: ARTHROPOD STING
     Dosage: 0.3 MG, SINGLE

REACTIONS (5)
  - ACCIDENTAL EXPOSURE [None]
  - ADVERSE EVENT [None]
  - CLOSTRIDIAL INFECTION [None]
  - INJECTION SITE PAIN [None]
  - SKELETAL INJURY [None]
